FAERS Safety Report 10923424 (Version 3)
Quarter: 2015Q2

REPORT INFORMATION
  Report Type: Report from Study
  Country: CA (occurrence: CA)
  Receive Date: 20150318
  Receipt Date: 20150403
  Transmission Date: 20150821
  Serious: Yes (Life-Threatening, Hospitalization, Other)
  Sender: FDA-Public Use
  Company Number: CA-ROCHE-1549757

PATIENT
  Age: 77 Year
  Sex: Male

DRUGS (15)
  1. NORVASC [Concomitant]
     Active Substance: AMLODIPINE BESYLATE
  2. LASIX [Concomitant]
     Active Substance: FUROSEMIDE
  3. OLMESARTAN [Concomitant]
     Active Substance: OLMESARTAN
  4. ULORIC [Concomitant]
     Active Substance: FEBUXOSTAT
  5. FEBUXOSTAT. [Concomitant]
     Active Substance: FEBUXOSTAT
  6. WARFARIN [Concomitant]
     Active Substance: WARFARIN
  7. PREGABALIN. [Concomitant]
     Active Substance: PREGABALIN
  8. PREDNISONE. [Concomitant]
     Active Substance: PREDNISONE
  9. BISOPROLOL [Concomitant]
     Active Substance: BISOPROLOL
  10. EZETIMIBE. [Concomitant]
     Active Substance: EZETIMIBE
  11. SPIRONOLACTONE. [Concomitant]
     Active Substance: SPIRONOLACTONE
  12. PANTOLOC [Concomitant]
     Active Substance: PANTOPRAZOLE SODIUM
  13. ACTEMRA [Suspect]
     Active Substance: TOCILIZUMAB
     Indication: RHEUMATOID ARTHRITIS
     Route: 058
     Dates: start: 20141120
  14. NTG PATCH [Concomitant]
  15. TRAMADOL [Concomitant]
     Active Substance: TRAMADOL

REACTIONS (4)
  - Cerebrovascular accident [Unknown]
  - Blindness [Unknown]
  - Respiratory arrest [Recovering/Resolving]
  - Cardiac failure [Recovering/Resolving]

NARRATIVE: CASE EVENT DATE: 20150228
